FAERS Safety Report 6955273-8 (Version None)
Quarter: 2010Q3

REPORT INFORMATION
  Report Type: 
  Country: None (occurrence: None)
  Receive Date: 20100830
  Receipt Date: 20100817
  Transmission Date: 20110219
  Serious: Yes (Hospitalization)
  Sender: FDA-Public Use
  Company Number: PHHY2010US54802

PATIENT
  Sex: Male

DRUGS (2)
  1. EXJADE [Suspect]
     Dosage: 1000 MG, BID
     Route: 048
  2. ANTIBIOTICS [Concomitant]
     Dosage: UNK

REACTIONS (1)
  - PHOTOPHOBIA [None]
